FAERS Safety Report 4817816-X (Version None)
Quarter: 2005Q3

REPORT INFORMATION
  Report Type: 
  Country: None (occurrence: None)
  Receive Date: 20050929
  Receipt Date: 20050624
  Transmission Date: 20060218
  Serious: No
  Sender: FDA-Public Use
  Company Number: 05P-163-0304041-00

PATIENT
  Age: 72 Year
  Sex: Female
  Weight: 73.0291 kg

DRUGS (8)
  1. HUMIRA [Suspect]
     Indication: RHEUMATOID ARTHRITIS
     Dosage: 40 MG, 1 IN 2 WEK, SUBCUTANEOUS
     Route: 058
     Dates: start: 20050607
  2. LEVOTHYROXINE SODIUM [Concomitant]
  3. LISINOPRIL [Concomitant]
  4. PREDNISONE [Concomitant]
  5. TRAMADOL  HYDROCHLORIDE [Concomitant]
  6. RISEDRONATE SODIUM [Concomitant]
  7. CALCIUM GLUCONATE [Concomitant]
  8. MULTI-VITAMINS [Concomitant]

REACTIONS (1)
  - BACK PAIN [None]
